FAERS Safety Report 5551546-4 (Version None)
Quarter: 2007Q4

REPORT INFORMATION
  Report Type: 
  Country: None (occurrence: None)
  Receive Date: 20071212
  Receipt Date: 20071206
  Transmission Date: 20080405
  Serious: Yes (Other)
  Sender: FDA-Public Use
  Company Number: FR-SANOFI-SYNTHELABO-F01200701615

PATIENT
  Sex: Male

DRUGS (3)
  1. RADIOTHERAPY [Suspect]
     Dosage: 2 GY
     Dates: start: 20060925
  2. CAPECITABINE [Suspect]
     Route: 048
     Dates: start: 20060925
  3. OXALIPLATIN [Suspect]
     Indication: COLORECTAL CANCER
     Route: 042
     Dates: start: 20060925, end: 20060925

REACTIONS (1)
  - HYPERKALAEMIA [None]
